FAERS Safety Report 7063968-3 (Version None)
Quarter: 2010Q4

REPORT INFORMATION
  Report Type: 
  Country: None (occurrence: None)
  Receive Date: 20101026
  Receipt Date: 20101006
  Transmission Date: 20110411
  Serious: No
  Sender: FDA-Public Use
  Company Number: US-ABBOTT-10P-163-0677149-00

PATIENT
  Sex: Female
  Weight: 68.1 kg

DRUGS (1)
  1. LUPRON DEPOT [Suspect]
     Indication: ENDOMETRIOSIS
     Dosage: UNKNOWN
     Route: 058
     Dates: start: 20100701

REACTIONS (4)
  - BACK PAIN [None]
  - INFECTION [None]
  - MICTURITION URGENCY [None]
  - POLLAKIURIA [None]
